FAERS Safety Report 10472267 (Version 2)
Quarter: 2014Q3

REPORT INFORMATION
  Report Type: Report from Study
  Country: None (occurrence: DE)
  Receive Date: 20140924
  Receipt Date: 20140924
  Transmission Date: 20150326
  Serious: Yes (Death)
  Sender: FDA-Public Use
  Company Number: DE-CELGENE-062-21880-14072434

PATIENT
  Age: 84 Year
  Sex: Male
  Weight: 67 kg

DRUGS (7)
  1. REVLIMID [Suspect]
     Active Substance: LENALIDOMIDE
     Route: 048
     Dates: start: 201305, end: 201310
  2. BENDAMUSTINE [Concomitant]
     Active Substance: BENDAMUSTINE
     Route: 048
     Dates: start: 201401, end: 201405
  3. BENDAMUSTINE [Concomitant]
     Active Substance: BENDAMUSTINE
     Indication: PLASMA CELL MYELOMA
     Route: 048
     Dates: start: 20140617, end: 20140701
  4. REVLIMID [Suspect]
     Active Substance: LENALIDOMIDE
     Indication: PLASMA CELL MYELOMA
     Route: 048
     Dates: start: 20130530, end: 20130707
  5. REVLIMID [Suspect]
     Active Substance: LENALIDOMIDE
     Route: 048
     Dates: start: 20130708, end: 20130926
  6. POMALIDOMIDE [Suspect]
     Active Substance: POMALIDOMIDE
     Indication: PLASMA CELL MYELOMA
     Route: 048
     Dates: start: 201311, end: 201311
  7. PREDNISONE. [Concomitant]
     Active Substance: PREDNISONE
     Indication: PLASMA CELL MYELOMA
     Route: 065
     Dates: start: 201401, end: 201405

REACTIONS (1)
  - Death [Fatal]

NARRATIVE: CASE EVENT DATE: 20140705
